FAERS Safety Report 24329275 (Version 2)
Quarter: 2024Q3

REPORT INFORMATION
  Report Type: Report from Study
  Country: US (occurrence: US)
  Receive Date: 20240917
  Receipt Date: 20240927
  Transmission Date: 20241017
  Serious: Yes (Hospitalization)
  Sender: TEVA
  Company Number: US-TEVA-VS-3243165

PATIENT
  Age: 22 Year
  Sex: Female
  Weight: 33 kg

DRUGS (10)
  1. ISONIAZID [Suspect]
     Active Substance: ISONIAZID
     Indication: Pulmonary tuberculosis
     Dosage: THE PATIENT ERRONEOUSLY TOOK TWICE THE PRESCRIBED DAILY DOSAGE 5H APART (ACCIDENTAL OVERDOSE AND ...
     Route: 065
     Dates: start: 202209
  2. ISONIAZID [Suspect]
     Active Substance: ISONIAZID
     Indication: Pulmonary tuberculosis
     Dosage: PHZEC REGIMEN
     Route: 065
     Dates: start: 202209
  3. PYRAZINAMIDE [Suspect]
     Active Substance: PYRAZINAMIDE
     Indication: Pulmonary tuberculosis
     Dosage: THE PATIENT ERRONEOUSLY TOOK TWICE THE PRESCRIBED DAILY DOSAGE 5H APART (ACCIDENTAL OVERDOSE AND ...
     Route: 065
     Dates: start: 202209
  4. PYRAZINAMIDE [Suspect]
     Active Substance: PYRAZINAMIDE
     Indication: Pulmonary tuberculosis
     Dosage: PHZEC REGIMEN
     Route: 065
     Dates: start: 202209
  5. ETHAMBUTOL [Suspect]
     Active Substance: ETHAMBUTOL HYDROCHLORIDE
     Indication: Pulmonary tuberculosis
     Dosage: THE PATIENT ERRONEOUSLY TOOK TWICE THE PRESCRIBED DAILY DOSAGE 5H APART (ACCIDENTAL OVERDOSE AND ...
     Route: 065
     Dates: start: 202209
  6. ETHAMBUTOL [Suspect]
     Active Substance: ETHAMBUTOL HYDROCHLORIDE
     Indication: Pulmonary tuberculosis
     Dosage: PHZEC REGIMEN
     Route: 065
     Dates: start: 202209
  7. CLOFAZIMINE [Suspect]
     Active Substance: CLOFAZIMINE
     Indication: Pulmonary tuberculosis
     Dosage: PHZEC REGIMEN
     Route: 065
     Dates: start: 202209
  8. CLOFAZIMINE [Suspect]
     Active Substance: CLOFAZIMINE
     Indication: Pulmonary tuberculosis
     Dosage: THE PATIENT ERRONEOUSLY TOOK TWICE THE PRESCRIBED DAILY DOSAGE 5H APART (ACCIDENTAL OVERDOSE AND ...
     Route: 065
     Dates: start: 202209
  9. RIFAPENTINE [Suspect]
     Active Substance: RIFAPENTINE
     Indication: Pulmonary tuberculosis
     Dosage: THE PATIENT ERRONEOUSLY TOOK TWICE THE PRESCRIBED DAILY DOSAGE 5H APART (ACCIDENTAL OVERDOSE AND ...
     Route: 065
     Dates: start: 202209
  10. RIFAPENTINE [Suspect]
     Active Substance: RIFAPENTINE
     Indication: Pulmonary tuberculosis
     Dosage: PHZEC REGIMEN
     Route: 065
     Dates: start: 202209

REACTIONS (5)
  - Hyperbilirubinaemia [Recovered/Resolved]
  - Hepatotoxicity [Recovered/Resolved]
  - Accidental overdose [Unknown]
  - Inappropriate schedule of product administration [Unknown]
  - Extra dose administered [Unknown]

NARRATIVE: CASE EVENT DATE: 20220901
